FAERS Safety Report 17520263 (Version 1)
Quarter: 2020Q1

REPORT INFORMATION
  Report Type: Spontaneous
  Country: KR (occurrence: KR)
  Receive Date: 20200309
  Receipt Date: 20200309
  Transmission Date: 20200409
  Serious: Yes (Hospitalization, Other)
  Sender: FDA-Public Use
  Company Number: KR-GILEAD-2020-0453896

PATIENT
  Sex: Female

DRUGS (1)
  1. TRUVADA [Suspect]
     Active Substance: EMTRICITABINE\TENOFOVIR DISOPROXIL FUMARATE
     Indication: CORONA VIRUS INFECTION
     Dosage: UNK
     Route: 065
     Dates: start: 202002

REACTIONS (3)
  - Off label use [Recovered/Resolved]
  - Hypertension [Unknown]
  - Pyelonephritis [Unknown]

NARRATIVE: CASE EVENT DATE: 202002
